FAERS Safety Report 18269057 (Version 1)
Quarter: 2020Q3

REPORT INFORMATION
  Report Type: Report from Study
  Country: CA (occurrence: CA)
  Receive Date: 20200915
  Receipt Date: 20200915
  Transmission Date: 20201103
  Serious: Yes (Other)
  Sender: FDA-Public Use
  Company Number: CA-JNJFOC-20200911476

PATIENT
  Age: 10 Year
  Sex: Female
  Weight: 35 kg

DRUGS (1)
  1. REMICADE [Suspect]
     Active Substance: INFLIXIMAB
     Indication: CROHN^S DISEASE
     Dosage: 5 MG/KG
     Route: 042
     Dates: end: 20200901

REACTIONS (4)
  - Nervous system disorder [Unknown]
  - Off label use [Unknown]
  - Crohn^s disease [Unknown]
  - Product use issue [Unknown]
